FAERS Safety Report 8297988-8 (Version None)
Quarter: 2012Q2

REPORT INFORMATION
  Report Type: 
  Country: None (occurrence: None)
  Receive Date: 20120419
  Receipt Date: 20120410
  Transmission Date: 20120825
  Serious: Yes (Hospitalization)
  Sender: FDA-Public Use
  Company Number: US-MYLANLABS-2012S1004514

PATIENT
  Age: 66 Year
  Sex: Male

DRUGS (2)
  1. FENTANYL-100 [Suspect]
     Indication: BACK PAIN
     Dosage: CHANGED Q72H
     Route: 062
     Dates: start: 20120216, end: 20120226
  2. COUMADIN [Concomitant]
     Indication: HEART VALVE REPLACEMENT
     Dates: start: 19980101

REACTIONS (8)
  - AGITATION [None]
  - NAUSEA [None]
  - VOMITING [None]
  - OESOPHAGEAL RUPTURE [None]
  - HAEMATEMESIS [None]
  - NERVOUSNESS [None]
  - DRUG WITHDRAWAL SYNDROME [None]
  - FEELING ABNORMAL [None]
